FAERS Safety Report 7945246-0 (Version None)
Quarter: 2011Q4

REPORT INFORMATION
  Report Type: 
  Country: None (occurrence: None)
  Receive Date: 20111122
  Receipt Date: 20111114
  Transmission Date: 20120403
  Serious: Yes (Hospitalization)
  Sender: FDA-Public Use
  Company Number: 2011SP035870

PATIENT
  Age: 23 Year
  Sex: Female
  Weight: 86.1834 kg

DRUGS (2)
  1. NUVARING [Suspect]
     Indication: CONTRACEPTION
     Dates: start: 20080701, end: 20090801
  2. NUVARING [Suspect]
     Indication: MENSTRUAL CYCLE MANAGEMENT
     Dates: start: 20080701, end: 20090801

REACTIONS (12)
  - PULMONARY EMBOLISM [None]
  - MIGRAINE [None]
  - BEDRIDDEN [None]
  - GALLBLADDER OPERATION [None]
  - ANXIETY [None]
  - ASTHMA [None]
  - SINUS DISORDER [None]
  - NERVE INJURY [None]
  - DEEP VEIN THROMBOSIS [None]
  - DEPRESSION [None]
  - HEADACHE [None]
  - NEPHROPATHY [None]
